FAERS Safety Report 5154522-9 (Version None)
Quarter: 2006Q4

REPORT INFORMATION
  Report Type: 
  Country: None (occurrence: None)
  Receive Date: 20061120
  Receipt Date: 20061005
  Transmission Date: 20070319
  Serious: Yes (Other)
  Sender: FDA-Public Use
  Company Number: JP-MERCK-0610USA13114

PATIENT
  Age: 72 Year
  Sex: Female
  Weight: 44 kg

DRUGS (13)
  1. ZOCOR [Suspect]
     Indication: HYPERCHOLESTEROLAEMIA
     Route: 048
     Dates: start: 20060731, end: 20061004
  2. PEPCID [Suspect]
     Indication: GASTRITIS
     Route: 048
     Dates: end: 20061004
  3. TOLEDOMIN [Concomitant]
     Route: 048
  4. NEUQUINON [Concomitant]
     Route: 048
  5. SELBEX [Concomitant]
     Indication: NAUSEA
     Route: 048
     Dates: start: 20060915
  6. TASMOLIN TABLETS [Concomitant]
     Route: 065
  7. BROMISOVALUM [Concomitant]
     Route: 048
  8. HALCION [Concomitant]
     Route: 048
  9. EURODIN [Concomitant]
     Route: 048
  10. FERO-GRADUMET [Concomitant]
     Route: 048
  11. SEPAZON [Concomitant]
     Route: 048
  12. PERIACTIN [Suspect]
     Indication: ANOREXIA
     Route: 048
     Dates: start: 20060926, end: 20060928
  13. PERIACTIN [Suspect]
     Route: 048
     Dates: start: 20060922, end: 20060925

REACTIONS (3)
  - ANOREXIA [None]
  - NAUSEA [None]
  - PARKINSONISM [None]
